FAERS Safety Report 19031171 (Version 1)
Quarter: 2021Q1

REPORT INFORMATION
  Report Type: Spontaneous
  Country: US (occurrence: US)
  Receive Date: 20210319
  Receipt Date: 20210319
  Transmission Date: 20210420
  Serious: No
  Sender: FDA-Public Use
  Company Number: US-APOTEX-2021AP005553

PATIENT
  Sex: Female

DRUGS (2)
  1. KETOROLAC TROMETHAMINE OPTHALMIC SOLUTION [Suspect]
     Active Substance: KETOROLAC TROMETHAMINE
     Indication: EYE PAIN
     Dosage: UNK
     Route: 065
  2. PREDNISOLONE. [Suspect]
     Active Substance: PREDNISOLONE
     Indication: EYE PAIN
     Dosage: UNK
     Route: 065

REACTIONS (3)
  - Discomfort [Unknown]
  - Ocular hyperaemia [Unknown]
  - Eye pain [Unknown]
